FAERS Safety Report 22021353 (Version 1)
Quarter: 2023Q1

REPORT INFORMATION
  Report Type: Spontaneous
  Country: US (occurrence: None)
  Receive Date: 20230218
  Receipt Date: 20230218
  Transmission Date: 20230417
  Serious: Yes (Other)
  Sender: FDA-Public Use
  Company Number: None

PATIENT
  Age: 34 Year
  Sex: Female

DRUGS (1)
  1. PAXLOVID [Suspect]
     Active Substance: NIRMATRELVIR\RITONAVIR
     Indication: COVID-19
     Dates: start: 20230217, end: 20230218

REACTIONS (4)
  - Nausea [None]
  - Vomiting [None]
  - Fluid intake reduced [None]
  - Therapy cessation [None]

NARRATIVE: CASE EVENT DATE: 20230217
